FAERS Safety Report 7641852-1 (Version None)
Quarter: 2011Q3

REPORT INFORMATION
  Report Type: 
  Country: None (occurrence: None)
  Receive Date: 20110728
  Receipt Date: 20110714
  Transmission Date: 20111222
  Serious: Yes (Death)
  Sender: FDA-Public Use
  Company Number: CA-ROCHE-790087

PATIENT
  Age: 53 Year
  Sex: Female

DRUGS (6)
  1. REBIF [Suspect]
     Dosage: THERAPY DURATION: ONE MONTH
     Route: 065
  2. BUPROPION HCL [Suspect]
     Route: 065
  3. ACETAMINOPHEN W/ CODEINE [Suspect]
     Route: 065
  4. DOCUSATE SODIUM [Suspect]
     Route: 065
  5. DIAZEPAM [Suspect]
     Route: 065
  6. DYAZIDE [Suspect]
     Route: 065

REACTIONS (12)
  - WEIGHT DECREASED [None]
  - NAUSEA [None]
  - ABDOMINAL DISTENSION [None]
  - RASH [None]
  - ABDOMINAL PAIN UPPER [None]
  - BLOOD ALKALINE PHOSPHATASE INCREASED [None]
  - DECREASED APPETITE [None]
  - METASTASES TO LIVER [None]
  - CHANGE OF BOWEL HABIT [None]
  - GAMMA-GLUTAMYLTRANSFERASE INCREASED [None]
  - BLOOD BILIRUBIN INCREASED [None]
  - HEPATIC NEOPLASM MALIGNANT [None]
